FAERS Safety Report 16804251 (Version 1)
Quarter: 2019Q3

REPORT INFORMATION
  Report Type: Spontaneous
  Country: JP (occurrence: JP)
  Receive Date: 20190913
  Receipt Date: 20190913
  Transmission Date: 20191005
  Serious: Yes (Other)
  Sender: FDA-Public Use
  Company Number: JP-ACCORD-154728

PATIENT
  Age: 69 Year
  Sex: Male

DRUGS (4)
  1. FLUOROURACIL. [Suspect]
     Active Substance: FLUOROURACIL
     Indication: OESOPHAGEAL SQUAMOUS CELL CARCINOMA
     Dosage: BIWEEKLY, DAY 1-5
  2. CISPLATIN. [Concomitant]
     Active Substance: CISPLATIN
     Indication: OESOPHAGEAL SQUAMOUS CELL CARCINOMA
     Dosage: FP COMBINATION THERAPY, DAY 1
  3. CISPLATIN. [Concomitant]
     Active Substance: CISPLATIN
     Indication: OESOPHAGEAL SQUAMOUS CELL CARCINOMA
     Dosage: BIWEEKLY DCF COMBINATION THERAPY, DAY 1
  4. DOCETAXEL. [Suspect]
     Active Substance: DOCETAXEL
     Indication: OESOPHAGEAL SQUAMOUS CELL CARCINOMA
     Dosage: BIWEEKLY, DAY 1

REACTIONS (4)
  - Vasospasm [Recovered/Resolved]
  - Drug hypersensitivity [Unknown]
  - Ischaemia [Recovered/Resolved]
  - Atrial fibrillation [Recovered/Resolved]
